FAERS Safety Report 11130472 (Version 1)
Quarter: 2015Q2

REPORT INFORMATION
  Report Type: Spontaneous
  Country: FR (occurrence: FR)
  Receive Date: 20150522
  Receipt Date: 20150522
  Transmission Date: 20150821
  Serious: Yes (Other)
  Sender: FDA-Public Use
  Company Number: FR-009507513-1505FRA006927

PATIENT
  Sex: Male
  Weight: 123 kg

DRUGS (8)
  1. PROGRAF [Concomitant]
     Active Substance: TACROLIMUS\TACROLIMUS ANHYDROUS
     Indication: TRANSPLANT REJECTION
     Dosage: 3 MG, QD
     Dates: start: 20130412
  2. INEXIUM (ESOMEPRAZOLE MAGNESIUM) [Concomitant]
     Active Substance: ESOMEPRAZOLE MAGNESIUM
     Indication: GASTRIC ULCER
     Dosage: 40 MG, QD
     Dates: start: 2013
  3. AVLOCARDYL [Concomitant]
     Active Substance: PROPRANOLOL HYDROCHLORIDE
     Indication: HEART ALTERNATION
     Dosage: 160 MG, QD
     Dates: start: 201204
  4. BOCEPREVIR [Suspect]
     Active Substance: BOCEPREVIR
     Indication: VIRAL INFECTION
     Dosage: 200 MG, QID
     Dates: start: 20130212, end: 20130412
  5. AOTAL [Concomitant]
     Active Substance: ACAMPROSATE CALCIUM
     Indication: ALCOHOL WITHDRAWAL SYNDROME
     Dosage: 99 MG, TID
     Dates: start: 201204
  6. INTERFERON ALFA NOS [Suspect]
     Active Substance: INTERFERON ALFA-2A OR INTERFERON ALFA-2B
     Indication: VIRAL INFECTION
     Dosage: 180 MICROGRAM, QW
     Dates: start: 20130212, end: 20130212
  7. SOLUPRED [Concomitant]
     Active Substance: PREDNISOLONE
     Indication: INFLAMMATION
     Dosage: 12.5 MG, QD
     Dates: start: 20130412
  8. URSOLVAN [Concomitant]
     Active Substance: URSODIOL
     Indication: CHOLELITHOTOMY
     Dosage: 1000 MG, FIVE TIMES DAILY
     Dates: start: 201304

REACTIONS (9)
  - Haematoma [Unknown]
  - Hernial eventration [Unknown]
  - Neutropenia [Unknown]
  - Abscess [Unknown]
  - Jaundice cholestatic [Unknown]
  - Hyponatraemia [Unknown]
  - Diabetes mellitus [Unknown]
  - Liver transplant rejection [Unknown]
  - Pancytopenia [Unknown]
